FAERS Safety Report 7183612-4 (Version None)
Quarter: 2010Q4

REPORT INFORMATION
  Report Type: 
  Country: None (occurrence: None)
  Receive Date: 20101220
  Receipt Date: 20101220
  Transmission Date: 20110411
  Serious: Yes (Hospitalization)
  Sender: FDA-Public Use
  Company Number: None

PATIENT
  Sex: Female
  Weight: 102.0593 kg

DRUGS (8)
  1. LENALIDOMIDE [Suspect]
     Indication: HODGKIN'S DISEASE
     Dosage: 25MG QDAY PO
     Route: 048
     Dates: start: 20101029
  2. FENTANYL [Concomitant]
  3. NORCO [Concomitant]
  4. OXYCONTIN [Concomitant]
  5. LORAZEPAM [Concomitant]
  6. ATARAX [Concomitant]
  7. AMBIEN [Concomitant]
  8. ACV [Concomitant]

REACTIONS (1)
  - PAIN [None]
